FAERS Safety Report 15051715 (Version 2)
Quarter: 2019Q1

REPORT INFORMATION
  Report Type: Spontaneous
  Country: RU (occurrence: RU)
  Receive Date: 20180622
  Receipt Date: 20190212
  Transmission Date: 20190417
  Serious: Yes (Hospitalization, Other)
  Sender: FDA-Public Use
  Company Number: RU-SA-2018SA155389

PATIENT
  Age: 12 Year
  Sex: Female

DRUGS (7)
  1. CYCLOPHOSPHAMIDE. [Concomitant]
     Active Substance: CYCLOPHOSPHAMIDE
     Indication: ACUTE LYMPHOCYTIC LEUKAEMIA
  2. BORTEZOMIB. [Concomitant]
     Active Substance: BORTEZOMIB
     Indication: ACUTE LYMPHOCYTIC LEUKAEMIA
  3. EVOLTRA [Suspect]
     Active Substance: CLOFARABINE
  4. TEPADINA [Concomitant]
     Active Substance: THIOTEPA
     Indication: ACUTE LYMPHOCYTIC LEUKAEMIA
  5. LENALIDOMIDE [Concomitant]
     Active Substance: LENALIDOMIDE
     Indication: ACUTE LYMPHOCYTIC LEUKAEMIA
  6. CYTARABINE. [Suspect]
     Active Substance: CYTARABINE
  7. MYLERAN [Suspect]
     Active Substance: BUSULFAN

REACTIONS (5)
  - Graft versus host disease [Unknown]
  - Nasopharyngitis [Recovering/Resolving]
  - Drug ineffective [Recovering/Resolving]
  - Mucosal inflammation [Unknown]
  - Febrile neutropenia [Unknown]
